FAERS Safety Report 8757619 (Version 4)
Quarter: 2014Q3

REPORT INFORMATION
  Report Type: Report from Study
  Country: MX (occurrence: MX)
  Receive Date: 20120828
  Receipt Date: 20140916
  Transmission Date: 20150326
  Serious: Yes (Other)
  Sender: FDA-Public Use
  Company Number: PHHY2012MX072918

PATIENT
  Age: 85 Year
  Sex: Male

DRUGS (10)
  1. TRAMCET [Concomitant]
     Active Substance: ACETAMINOPHEN\TRAMADOL
     Indication: ARTHRALGIA
     Dosage: 1 UKN, UNK
     Dates: start: 2013, end: 201407
  2. SPIRIVA [Concomitant]
     Active Substance: TIOTROPIUM BROMIDE MONOHYDRATE
     Indication: LUNG DISORDER
     Dosage: 1, UKN, DAILY
     Dates: start: 2007
  3. ONBREZ [Suspect]
     Active Substance: INDACATEROL
     Dosage: 300 UG,1 CAPSULE
     Route: 055
  4. COMBIVENT [Concomitant]
     Active Substance: ALBUTEROL SULFATE\IPRATROPIUM BROMIDE
     Indication: LUNG DISORDER
     Dates: start: 200701
  5. THEOPHYLLINE [Concomitant]
     Active Substance: THEOPHYLLINE
     Indication: LUNG DISORDER
     Dates: start: 201107
  6. ENALAPRIL [Concomitant]
     Active Substance: ENALAPRIL
     Indication: HYPERTENSION
     Dates: start: 200701
  7. OXYGEN. [Concomitant]
     Active Substance: OXYGEN
  8. ACETYLSALICYLIC ACID [Concomitant]
     Active Substance: ASPIRIN
     Indication: CARDIAC DISORDER
     Dosage: 1 UKN, DAILY
     Dates: start: 2007
  9. GABAPENTIN. [Concomitant]
     Active Substance: GABAPENTIN
     Indication: ARTHRALGIA
     Dosage: 1 UKN, UNK
     Dates: start: 2009
  10. ONBREZ [Suspect]
     Active Substance: INDACATEROL
     Indication: CHRONIC OBSTRUCTIVE PULMONARY DISEASE
     Dosage: 150 UG, DAILY
     Route: 055
     Dates: start: 201111

REACTIONS (5)
  - Abdominal discomfort [Recovered/Resolved]
  - Drug ineffective [Recovered/Resolved]
  - Emphysema [Not Recovered/Not Resolved]
  - Abdominal distension [Recovered/Resolved]
  - Asphyxia [Recovered/Resolved]

NARRATIVE: CASE EVENT DATE: 201211
